FAERS Safety Report 11087868 (Version 1)
Quarter: 2015Q2

REPORT INFORMATION
  Report Type: Report from Study
  Country: DE (occurrence: DE)
  Receive Date: 20150504
  Receipt Date: 20150504
  Transmission Date: 20150821
  Serious: Yes (Hospitalization)
  Sender: FDA-Public Use
  Company Number: PHHY2015DE047784

PATIENT
  Sex: Female
  Weight: 85 kg

DRUGS (7)
  1. TOPIRAMATE. [Concomitant]
     Active Substance: TOPIRAMATE
     Indication: TREMOR
     Dosage: 25 MG, QD
     Route: 048
     Dates: start: 20150416
  2. SPASMEX [Concomitant]
     Active Substance: TROSPIUM CHLORIDE
     Indication: MUSCLE SPASTICITY
     Dosage: 15 MG, BID
     Route: 048
     Dates: start: 20130411
  3. GILENYA [Suspect]
     Active Substance: FINGOLIMOD HYDROCHLORIDE
     Dosage: 0.5 MG, QD
     Route: 048
     Dates: start: 20150411
  4. TREVILOR RETARD [Concomitant]
     Active Substance: VENLAFAXINE HYDROCHLORIDE
     Indication: DEPRESSION
     Dosage: 150 MG, BID
     Route: 048
     Dates: start: 20110426, end: 20150416
  5. TREVILOR RETARD [Concomitant]
     Active Substance: VENLAFAXINE HYDROCHLORIDE
     Dosage: 225 MG, QD
     Route: 048
     Dates: start: 20150416
  6. FAMPYRA [Concomitant]
     Active Substance: DALFAMPRIDINE
     Indication: GAIT DISTURBANCE
     Dosage: 10 MG, BID
     Route: 048
     Dates: start: 20121029
  7. GILENYA [Suspect]
     Active Substance: FINGOLIMOD HYDROCHLORIDE
     Indication: MULTIPLE SCLEROSIS
     Dosage: 0.5 MG, QD
     Route: 048
     Dates: start: 20130410, end: 20150326

REACTIONS (4)
  - Abdominal discomfort [Unknown]
  - Sleep disorder [Not Recovered/Not Resolved]
  - Suicide attempt [Recovered/Resolved]
  - Depression [Not Recovered/Not Resolved]

NARRATIVE: CASE EVENT DATE: 20150325
